FAERS Safety Report 18848055 (Version 1)
Quarter: 2021Q1

REPORT INFORMATION
  Report Type: Spontaneous
  Country: US (occurrence: US)
  Receive Date: 20210204
  Receipt Date: 20210204
  Transmission Date: 20210419
  Serious: No
  Sender: FDA-Public Use
  Company Number: US-MYLANLABS-2021M1005947

PATIENT
  Sex: Female

DRUGS (1)
  1. LANSOPRAZOLE DELAYED?RELEASE CAPSULES, USP [Suspect]
     Active Substance: LANSOPRAZOLE
     Indication: GASTROOESOPHAGEAL REFLUX DISEASE
     Dosage: 30 MILLIGRAM, QD, IN THE MORNING
     Route: 048

REACTIONS (2)
  - Drug ineffective [Recovering/Resolving]
  - Product use issue [Not Recovered/Not Resolved]
